FAERS Safety Report 16107562 (Version 1)
Quarter: 2019Q1

REPORT INFORMATION
  Report Type: Spontaneous
  Country: CN (occurrence: CN)
  Receive Date: 20190322
  Receipt Date: 20190322
  Transmission Date: 20190418
  Serious: Yes (Hospitalization)
  Sender: FDA-Public Use
  Company Number: CN-ELI_LILLY_AND_COMPANY-CN201903007806

PATIENT
  Age: 71 Year
  Weight: 80 kg

DRUGS (2)
  1. HUMALOG MIX75/25 [Suspect]
     Active Substance: INSULIN LISPRO
     Dosage: 15 IU, EACH MORNING
     Route: 058
     Dates: start: 2011
  2. HUMALOG MIX75/25 [Suspect]
     Active Substance: INSULIN LISPRO
     Indication: DIABETES MELLITUS
     Dosage: 25 IU, EACH MORNING
     Route: 058
     Dates: start: 2011

REACTIONS (1)
  - Diabetes mellitus inadequate control [Unknown]
